FAERS Safety Report 19317078 (Version 1)
Quarter: 2021Q2

REPORT INFORMATION
  Report Type: Spontaneous
  Country: US (occurrence: US)
  Receive Date: 20210527
  Receipt Date: 20210527
  Transmission Date: 20210717
  Serious: No
  Sender: FDA-Public Use
  Company Number: US-PFIZER INC-2021253740

PATIENT
  Age: 40 Year
  Sex: Male
  Weight: 99.79 kg

DRUGS (3)
  1. TESTOSTERONE CIPIONATE [Suspect]
     Active Substance: TESTOSTERONE
     Dosage: UNK
  2. ANASTROZOL [Concomitant]
     Active Substance: ANASTROZOLE
     Indication: BLOOD CHOLESTEROL ABNORMAL
     Dosage: 1 MG (HE TAKES HALF A PILL OF THE ANESTEROL EVERY THREE DAYS AND IT IS 1MG)
  3. TESTOSTERONE CIPIONATE [Suspect]
     Active Substance: TESTOSTERONE
     Indication: BLOOD TESTOSTERONE DECREASED
     Dosage: 200 MG (EVERY NINE DAYS  )
     Dates: start: 2014

REACTIONS (6)
  - Asthenia [Unknown]
  - Fatigue [Unknown]
  - Libido decreased [Unknown]
  - Product deposit [Unknown]
  - Poor quality product administered [Unknown]
  - Drug ineffective [Unknown]

NARRATIVE: CASE EVENT DATE: 2021
